FAERS Safety Report 23996203 (Version 25)
Quarter: 2025Q2

REPORT INFORMATION
  Report Type: Spontaneous
  Country: AU (occurrence: AU)
  Receive Date: 20240620
  Receipt Date: 20250626
  Transmission Date: 20250716
  Serious: Yes (Hospitalization, Other)
  Sender: MYLAN
  Company Number: AU-MYLANLABS-2024M1047161

PATIENT
  Age: 58 Year
  Sex: Male

DRUGS (56)
  1. CLOZARIL [Suspect]
     Active Substance: CLOZAPINE
     Indication: Schizophrenia
  2. CLOZARIL [Suspect]
     Active Substance: CLOZAPINE
     Route: 048
  3. CLOZARIL [Suspect]
     Active Substance: CLOZAPINE
     Route: 048
  4. CLOZARIL [Suspect]
     Active Substance: CLOZAPINE
  5. CLOZARIL [Suspect]
     Active Substance: CLOZAPINE
  6. CLOZARIL [Suspect]
     Active Substance: CLOZAPINE
  7. CLOZARIL [Suspect]
     Active Substance: CLOZAPINE
     Route: 048
  8. CLOZARIL [Suspect]
     Active Substance: CLOZAPINE
     Route: 048
  9. CLOZARIL [Suspect]
     Active Substance: CLOZAPINE
  10. CLOZARIL [Suspect]
     Active Substance: CLOZAPINE
     Route: 048
  11. CLOZARIL [Suspect]
     Active Substance: CLOZAPINE
  12. CLOZARIL [Suspect]
     Active Substance: CLOZAPINE
     Route: 048
  13. CLOZARIL [Suspect]
     Active Substance: CLOZAPINE
     Dosage: 350 MILLIGRAM, QD (NOCTE)
     Route: 048
     Dates: start: 20160516, end: 20241209
  14. CLOZARIL [Suspect]
     Active Substance: CLOZAPINE
     Dosage: 350 MILLIGRAM, QD (NOCTE)
     Route: 048
     Dates: start: 20160516, end: 20241209
  15. CLOZARIL [Suspect]
     Active Substance: CLOZAPINE
     Dosage: 350 MILLIGRAM, QD (NOCTE)
     Dates: start: 20160516, end: 20241209
  16. CLOZARIL [Suspect]
     Active Substance: CLOZAPINE
     Dosage: 350 MILLIGRAM, QD (NOCTE)
     Dates: start: 20160516, end: 20241209
  17. CLOZARIL [Suspect]
     Active Substance: CLOZAPINE
     Route: 048
     Dates: start: 20250129, end: 20250227
  18. CLOZARIL [Suspect]
     Active Substance: CLOZAPINE
     Dates: start: 20250129, end: 20250227
  19. CLOZARIL [Suspect]
     Active Substance: CLOZAPINE
     Dates: start: 20250129, end: 20250227
  20. CLOZARIL [Suspect]
     Active Substance: CLOZAPINE
     Route: 048
     Dates: start: 20250129, end: 20250227
  21. PALIPERIDONE [Concomitant]
     Active Substance: PALIPERIDONE
     Dosage: 525 MILLIGRAM, Q3MONTHS (PALIPERIDONE TRINA)
     Route: 065
     Dates: end: 20241120
  22. PALIPERIDONE [Concomitant]
     Active Substance: PALIPERIDONE
     Dosage: 525 MILLIGRAM, Q3MONTHS (PALIPERIDONE TRINA)
     Dates: end: 20241120
  23. PALIPERIDONE [Concomitant]
     Active Substance: PALIPERIDONE
     Dosage: 525 MILLIGRAM, Q3MONTHS (PALIPERIDONE TRINA)
     Dates: end: 20241120
  24. PALIPERIDONE [Concomitant]
     Active Substance: PALIPERIDONE
     Dosage: 525 MILLIGRAM, Q3MONTHS (PALIPERIDONE TRINA)
     Route: 065
     Dates: end: 20241120
  25. PALIPERIDONE [Concomitant]
     Active Substance: PALIPERIDONE
     Dosage: 150 MILLIGRAM, 4XW (PALIPERIDONE SUSTENNA)
     Route: 065
     Dates: start: 20250618
  26. PALIPERIDONE [Concomitant]
     Active Substance: PALIPERIDONE
     Dosage: 150 MILLIGRAM, 4XW (PALIPERIDONE SUSTENNA)
     Dates: start: 20250618
  27. PALIPERIDONE [Concomitant]
     Active Substance: PALIPERIDONE
     Dosage: 150 MILLIGRAM, 4XW (PALIPERIDONE SUSTENNA)
     Dates: start: 20250618
  28. PALIPERIDONE [Concomitant]
     Active Substance: PALIPERIDONE
     Dosage: 150 MILLIGRAM, 4XW (PALIPERIDONE SUSTENNA)
     Route: 065
     Dates: start: 20250618
  29. DURVALUMAB [Concomitant]
     Active Substance: DURVALUMAB
     Dosage: 1500 MILLIGRAM, MONTHLY (EVERY 4 WEEKS)
     Dates: start: 20241025
  30. DURVALUMAB [Concomitant]
     Active Substance: DURVALUMAB
     Dosage: 1500 MILLIGRAM, MONTHLY (EVERY 4 WEEKS)
     Route: 065
     Dates: start: 20241025
  31. DURVALUMAB [Concomitant]
     Active Substance: DURVALUMAB
     Dosage: 1500 MILLIGRAM, MONTHLY (EVERY 4 WEEKS)
     Route: 065
     Dates: start: 20241025
  32. DURVALUMAB [Concomitant]
     Active Substance: DURVALUMAB
     Dosage: 1500 MILLIGRAM, MONTHLY (EVERY 4 WEEKS)
     Dates: start: 20241025
  33. ATORVASTATIN [Concomitant]
     Active Substance: ATORVASTATIN
     Dosage: 20 MILLIGRAM, PM (AT NIGHT)
  34. ATORVASTATIN [Concomitant]
     Active Substance: ATORVASTATIN
     Dosage: 20 MILLIGRAM, PM (AT NIGHT)
     Route: 065
  35. ATORVASTATIN [Concomitant]
     Active Substance: ATORVASTATIN
     Dosage: 20 MILLIGRAM, PM (AT NIGHT)
     Route: 065
  36. ATORVASTATIN [Concomitant]
     Active Substance: ATORVASTATIN
     Dosage: 20 MILLIGRAM, PM (AT NIGHT)
  37. PANTOPRAZOLE [Concomitant]
     Active Substance: PANTOPRAZOLE
     Dosage: 40 MILLIGRAM, PM (AT NIGHT)
  38. PANTOPRAZOLE [Concomitant]
     Active Substance: PANTOPRAZOLE
     Dosage: 40 MILLIGRAM, PM (AT NIGHT)
     Route: 065
  39. PANTOPRAZOLE [Concomitant]
     Active Substance: PANTOPRAZOLE
     Dosage: 40 MILLIGRAM, PM (AT NIGHT)
     Route: 065
  40. PANTOPRAZOLE [Concomitant]
     Active Substance: PANTOPRAZOLE
     Dosage: 40 MILLIGRAM, PM (AT NIGHT)
  41. DOCUSATE SODIUM\SENNOSIDE B [Concomitant]
     Active Substance: DOCUSATE SODIUM\SENNOSIDE B
  42. DOCUSATE SODIUM\SENNOSIDE B [Concomitant]
     Active Substance: DOCUSATE SODIUM\SENNOSIDE B
     Route: 065
  43. DOCUSATE SODIUM\SENNOSIDE B [Concomitant]
     Active Substance: DOCUSATE SODIUM\SENNOSIDE B
     Route: 065
  44. DOCUSATE SODIUM\SENNOSIDE B [Concomitant]
     Active Substance: DOCUSATE SODIUM\SENNOSIDE B
  45. PROMETHAZINE [Concomitant]
     Active Substance: PROMETHAZINE HYDROCHLORIDE
  46. PROMETHAZINE [Concomitant]
     Active Substance: PROMETHAZINE HYDROCHLORIDE
     Route: 065
  47. PROMETHAZINE [Concomitant]
     Active Substance: PROMETHAZINE HYDROCHLORIDE
     Route: 065
  48. PROMETHAZINE [Concomitant]
     Active Substance: PROMETHAZINE HYDROCHLORIDE
  49. VALPROATE SODIUM [Concomitant]
     Active Substance: VALPROATE SODIUM
     Dosage: 500 MILLIGRAM, BID (BD)
  50. VALPROATE SODIUM [Concomitant]
     Active Substance: VALPROATE SODIUM
     Dosage: 500 MILLIGRAM, BID (BD)
     Route: 065
  51. VALPROATE SODIUM [Concomitant]
     Active Substance: VALPROATE SODIUM
     Dosage: 500 MILLIGRAM, BID (BD)
     Route: 065
  52. VALPROATE SODIUM [Concomitant]
     Active Substance: VALPROATE SODIUM
     Dosage: 500 MILLIGRAM, BID (BD)
  53. OLANZAPINE [Concomitant]
     Active Substance: OLANZAPINE
     Dosage: UNK, BID (10MG IN MORNING AND 15 MG AT NIGHT)
  54. OLANZAPINE [Concomitant]
     Active Substance: OLANZAPINE
     Dosage: UNK, BID (10MG IN MORNING AND 15 MG AT NIGHT)
     Route: 065
  55. OLANZAPINE [Concomitant]
     Active Substance: OLANZAPINE
     Dosage: UNK, BID (10MG IN MORNING AND 15 MG AT NIGHT)
     Route: 065
  56. OLANZAPINE [Concomitant]
     Active Substance: OLANZAPINE
     Dosage: UNK, BID (10MG IN MORNING AND 15 MG AT NIGHT)

REACTIONS (5)
  - Mental impairment [Unknown]
  - Pneumonia [Unknown]
  - Squamous cell carcinoma of lung [Unknown]
  - Leukopenia [Recovering/Resolving]
  - Neutropenia [Recovered/Resolved]

NARRATIVE: CASE EVENT DATE: 20240501
